FAERS Safety Report 17441325 (Version 2)
Quarter: 2020Q1

REPORT INFORMATION
  Report Type: Spontaneous
  Country: GB (occurrence: GB)
  Receive Date: 20200220
  Receipt Date: 20200228
  Transmission Date: 20200409
  Serious: Yes (Hospitalization)
  Sender: FDA-Public Use
  Company Number: GB-PFIZER INC-2020064679

PATIENT

DRUGS (6)
  1. FOLIC ACID. [Suspect]
     Active Substance: FOLIC ACID
     Dosage: 5 MG, DAILY
     Route: 064
  2. RAMIPRIL. [Suspect]
     Active Substance: RAMIPRIL
     Dosage: 2.5 MG, UNK
     Route: 064
  3. DALTEPARIN SODIUM [Suspect]
     Active Substance: DALTEPARIN SODIUM
     Dosage: 5000 IU, DAILY (AT 7 WEEKS OF GESTATION)
     Route: 064
  4. CITALOPRAM [Suspect]
     Active Substance: CITALOPRAM HYDROBROMIDE
     Dosage: 20 MG, DAILY
     Route: 064
  5. ENALAPRIL [Suspect]
     Active Substance: ENALAPRIL
     Dosage: 2.5 MG, UNK
     Route: 063
  6. ASPIRIN EC [Suspect]
     Active Substance: ASPIRIN
     Dosage: 75 MG, DAILY
     Route: 064

REACTIONS (5)
  - Maternal exposure timing unspecified [Unknown]
  - Exposure via breast milk [Unknown]
  - Small for dates baby [Unknown]
  - Foetal distress syndrome [Unknown]
  - Meconium stain [Unknown]
